FAERS Safety Report 6904164-7 (Version None)
Quarter: 2010Q3

REPORT INFORMATION
  Report Type: 
  Country: None (occurrence: None)
  Receive Date: 20100804
  Receipt Date: 20090324
  Transmission Date: 20110219
  Serious: No
  Sender: FDA-Public Use
  Company Number: US-PFIZER INC-2009162691

PATIENT
  Sex: Female
  Weight: 97.052 kg

DRUGS (19)
  1. LYRICA [Suspect]
     Indication: FIBROMYALGIA
     Dosage: 75 MG, 2X/DAY
     Dates: start: 20090114
  2. XANAX [Concomitant]
     Dosage: UNK
  3. ZANAFLEX [Concomitant]
     Dosage: UNK
  4. DYAZIDE [Concomitant]
     Dosage: UNK
  5. AMBIEN [Concomitant]
     Dosage: UNK
  6. VALIUM [Concomitant]
     Dosage: UNK
  7. LORTAB [Concomitant]
     Dosage: UNK
  8. AGGRENOX [Concomitant]
     Dosage: UNK
  9. EVISTA [Concomitant]
     Dosage: UNK
  10. CLONIDINE [Concomitant]
     Dosage: UNK
  11. PROMETHAZINE [Concomitant]
     Dosage: UNK
  12. POTASSIUM [Concomitant]
     Dosage: UNK
  13. ESTRADIOL [Concomitant]
     Dosage: UNK
  14. NEXIUM [Concomitant]
     Dosage: UNK
  15. XOPENEX [Concomitant]
     Dosage: UNK
  16. INSULIN [Concomitant]
     Dosage: UNK
  17. CYMBALTA [Concomitant]
     Dosage: UNK
  18. KEPPRA [Concomitant]
     Dosage: UNK
  19. LISINOPRIL [Concomitant]
     Dosage: UNK

REACTIONS (2)
  - FACE OEDEMA [None]
  - OEDEMA PERIPHERAL [None]
